FAERS Safety Report 6806691-X (Version None)
Quarter: 2010Q2

REPORT INFORMATION
  Report Type: 
  Country: None (occurrence: None)
  Receive Date: 20100629
  Receipt Date: 20080710
  Transmission Date: 20101027
  Serious: No
  Sender: FDA-Public Use
  Company Number: US-PFIZER INC-2008032507

PATIENT
  Sex: Male
  Weight: 122.47 kg

DRUGS (3)
  1. ZYVOX [Suspect]
     Indication: STAPHYLOCOCCAL INFECTION
     Dates: start: 20080329, end: 20080410
  2. ZYVOX [Suspect]
     Indication: SINUSITIS
  3. ANTIHYPERTENSIVES [Concomitant]

REACTIONS (3)
  - DIZZINESS [None]
  - HEADACHE [None]
  - TOOTH DISCOLOURATION [None]
